FAERS Safety Report 20258565 (Version 1)
Quarter: 2021Q4

REPORT INFORMATION
  Report Type: Spontaneous
  Country: CN (occurrence: CN)
  Receive Date: 20211230
  Receipt Date: 20211230
  Transmission Date: 20220303
  Serious: Yes (Hospitalization, Other)
  Sender: FDA-Public Use
  Company Number: CN-BAYER-2021A274466

PATIENT
  Age: 39 Year
  Sex: Female
  Weight: 62 kg

DRUGS (1)
  1. STIVARGA [Suspect]
     Active Substance: REGORAFENIB
     Indication: Colon cancer
     Dosage: 80 MG, QD
     Route: 048
     Dates: start: 20211116, end: 20211207

REACTIONS (12)
  - Febrile infection [Recovering/Resolving]
  - Rash vesicular [Recovering/Resolving]
  - Platelet count decreased [Recovering/Resolving]
  - Cancer pain [Recovering/Resolving]
  - Adenocarcinoma of colon [None]
  - Metastases to lung [None]
  - Metastases to lymph nodes [None]
  - Temperature intolerance [None]
  - Abdominal pain [Recovering/Resolving]
  - Back pain [Recovering/Resolving]
  - Productive cough [None]
  - Off label use [None]

NARRATIVE: CASE EVENT DATE: 20211101
